FAERS Safety Report 18099670 (Version 1)
Quarter: 2020Q3

REPORT INFORMATION
  Report Type: Spontaneous
  Country: US (occurrence: US)
  Receive Date: 20200731
  Receipt Date: 20200731
  Transmission Date: 20201103
  Serious: Yes (Other)
  Sender: FDA-Public Use
  Company Number: US-PFIZER INC-2020289456

PATIENT
  Age: 47 Year
  Sex: Male
  Weight: 63.5 kg

DRUGS (4)
  1. CHANTIX [Suspect]
     Active Substance: VARENICLINE TARTRATE
     Indication: SMOKING CESSATION THERAPY
     Dosage: FIRST TIME
  2. CHANTIX [Suspect]
     Active Substance: VARENICLINE TARTRATE
     Dosage: SECOND TIME
  3. PREDNISONE. [Concomitant]
     Active Substance: PREDNISONE
     Indication: NECK PAIN
     Dosage: UNK
  4. BACLOFEN. [Concomitant]
     Active Substance: BACLOFEN
     Indication: MUSCLE SPASMS
     Dosage: 10 MG (ONCE EVERY 2 WEEKS   )
     Route: 048

REACTIONS (3)
  - Squamous cell carcinoma [Unknown]
  - Product administration error [Unknown]
  - Drug ineffective [Unknown]
